FAERS Safety Report 7011830-4 (Version None)
Quarter: 2010Q3

REPORT INFORMATION
  Report Type: 
  Country: None (occurrence: None)
  Receive Date: 20100923
  Receipt Date: 20090824
  Transmission Date: 20110219
  Serious: No
  Sender: FDA-Public Use
  Company Number: US-WYE-H10707509

PATIENT
  Sex: Female
  Weight: 47.22 kg

DRUGS (5)
  1. PREMARIN [Suspect]
     Indication: OESTROGEN THERAPY
     Route: 048
     Dates: start: 20090301, end: 20090401
  2. PREMARIN [Suspect]
     Route: 048
     Dates: start: 20090401
  3. PEPCID [Concomitant]
  4. REFRESH [Concomitant]
  5. SYNTHROID [Concomitant]

REACTIONS (5)
  - ATROPHIC VULVOVAGINITIS [None]
  - DYSPAREUNIA [None]
  - OEDEMA GENITAL [None]
  - VULVOVAGINAL BURNING SENSATION [None]
  - VULVOVAGINAL DRYNESS [None]
